FAERS Safety Report 5897264-4 (Version None)
Quarter: 2008Q3

REPORT INFORMATION
  Report Type: 
  Country: None (occurrence: None)
  Receive Date: 20080923
  Receipt Date: 20080808
  Transmission Date: 20090109
  Serious: Yes (Hospitalization, Disabling)
  Sender: FDA-Public Use
  Company Number: RENA-1000212

PATIENT
  Age: 68 Year
  Sex: Female
  Weight: 35 kg

DRUGS (6)
  1. RENAGEL [Suspect]
     Indication: HYPERPHOSPHATAEMIA
     Dosage: 0.75 G, BID, ORAL; 0.75 G, TID, ORAL
     Route: 048
     Dates: start: 20060103, end: 20060501
  2. RENAGEL [Suspect]
     Indication: HYPERPHOSPHATAEMIA
     Dosage: 0.75 G, BID, ORAL; 0.75 G, TID, ORAL
     Route: 048
     Dates: start: 20060502, end: 20060920
  3. WARFARIN SODIUM [Concomitant]
  4. AMLODIPINE BESYLATE [Concomitant]
  5. FAMOTIDINE [Concomitant]
  6. KEISHIBUKURYOUGAN (HERBAL EXTRACT) [Concomitant]

REACTIONS (3)
  - COLD SWEAT [None]
  - CROHN'S DISEASE [None]
  - DIVERTICULITIS [None]
